FAERS Safety Report 17887222 (Version 2)
Quarter: 2020Q3

REPORT INFORMATION
  Report Type: Spontaneous
  Country: DE (occurrence: DE)
  Receive Date: 20200612
  Receipt Date: 20200826
  Transmission Date: 20201103
  Serious: Yes (Other)
  Sender: FDA-Public Use
  Company Number: DE-AUROBINDO-AUR-APL-2020-028224

PATIENT
  Sex: Female

DRUGS (4)
  1. VALSARTAN 1A PHARMA PLUS [Suspect]
     Active Substance: HYDROCHLOROTHIAZIDE\VALSARTAN
     Dosage: 80 MILLIGRAM (12.5 MG)
     Route: 065
     Dates: start: 201701, end: 201807
  2. VALSARTAN 1A PHARMA PLUS [Suspect]
     Active Substance: HYDROCHLOROTHIAZIDE\VALSARTAN
     Indication: PRODUCT USED FOR UNKNOWN INDICATION
     Dosage: 80 MILLIGRAM (12.5 MG)
     Route: 065
     Dates: start: 201405, end: 201503
  3. VALSARTAN. [Suspect]
     Active Substance: VALSARTAN
     Indication: PRODUCT USED FOR UNKNOWN INDICATION
     Dosage: 80 MILLIGRAM (12.5 MG)
     Route: 065
     Dates: start: 2009
  4. VALSARTAN MYLAN [Suspect]
     Active Substance: VALSARTAN
     Indication: PRODUCT USED FOR UNKNOWN INDICATION
     Dosage: 80 MILLIGRAM, ONCE A DAY
     Route: 065
     Dates: start: 2012

REACTIONS (4)
  - Impaired quality of life [Unknown]
  - Fear of disease [Unknown]
  - Emotional distress [Unknown]
  - Mental impairment [Unknown]
